FAERS Safety Report 18286147 (Version 1)
Quarter: 2020Q3

REPORT INFORMATION
  Report Type: Spontaneous
  Country: US (occurrence: US)
  Receive Date: 20200919
  Receipt Date: 20200919
  Transmission Date: 20201103
  Serious: Yes (Life-Threatening, Hospitalization)
  Sender: FDA-Public Use
  Company Number: US-TEVA-2020-US-1830213

PATIENT
  Sex: Male

DRUGS (1)
  1. AMIODARONE TEVA [Suspect]
     Active Substance: AMIODARONE
     Indication: ATRIAL FIBRILLATION
     Route: 065
     Dates: start: 200301

REACTIONS (13)
  - Renal disorder [Unknown]
  - Cough [Unknown]
  - Wheezing [Unknown]
  - Asthenia [Unknown]
  - Oedema [Unknown]
  - Fatigue [Unknown]
  - Chest pain [Unknown]
  - Gait disturbance [Unknown]
  - Off label use [Unknown]
  - Adverse event [Unknown]
  - Pulmonary toxicity [Unknown]
  - Dyspnoea [Unknown]
  - Dizziness [Unknown]

NARRATIVE: CASE EVENT DATE: 201709
